FAERS Safety Report 6612846-X (Version None)
Quarter: 2010Q1

REPORT INFORMATION
  Report Type: 
  Country: None (occurrence: None)
  Receive Date: 20100303
  Receipt Date: 20100225
  Transmission Date: 20100710
  Serious: Yes (Hospitalization)
  Sender: FDA-Public Use
  Company Number: FR-MERCK-1002FRA00106

PATIENT
  Age: 56 Year
  Sex: Male

DRUGS (2)
  1. ZOCOR [Suspect]
     Indication: DYSLIPIDAEMIA
     Route: 048
     Dates: start: 20061001, end: 20091116
  2. CHONDROITIN SULFATE SODIUM [Concomitant]
     Route: 048
     Dates: start: 20060101

REACTIONS (1)
  - TENDON RUPTURE [None]
